FAERS Safety Report 8895768 (Version 1)
Quarter: 2012Q4

REPORT INFORMATION
  Report Type: 
  Country: AR (occurrence: AR)
  Receive Date: 20121108
  Receipt Date: 20121108
  Transmission Date: 20130627
  Serious: No
  Sender: FDA-Public Use
  Company Number: AR-SANOFI-AVENTIS-2012SA001160

PATIENT
  Age: 30 Year
  Sex: Female

DRUGS (1)
  1. ARAVA [Suspect]
     Indication: RHEUMATOID ARTHRITIS
     Route: 048
     Dates: start: 2006, end: 201108

REACTIONS (2)
  - Leukopenia [Unknown]
  - Exposure during pregnancy [Unknown]
